FAERS Safety Report 13422754 (Version 1)
Quarter: 2017Q2

REPORT INFORMATION
  Report Type: Other
  Country: US (occurrence: US)
  Receive Date: 20170410
  Receipt Date: 20170410
  Transmission Date: 20170830
  Serious: No
  Sender: FDA-Public Use
  Company Number: US-EAGLE PHARMACEUTICALS, INC.-US-2017EAG000021

PATIENT
  Sex: Male

DRUGS (1)
  1. BENDEKA [Suspect]
     Active Substance: BENDAMUSTINE HYDROCHLORIDE
     Indication: PRODUCT USED FOR UNKNOWN INDICATION
     Dosage: UNK
     Route: 042
     Dates: start: 201611, end: 201611

REACTIONS (5)
  - Depression [Recovering/Resolving]
  - Nausea [Recovering/Resolving]
  - Oropharyngeal pain [Recovering/Resolving]
  - Tongue disorder [Recovering/Resolving]
  - Fatigue [Recovering/Resolving]

NARRATIVE: CASE EVENT DATE: 2016
